FAERS Safety Report 16456847 (Version 1)
Quarter: 2019Q2

REPORT INFORMATION
  Report Type: Other
  Country: IT (occurrence: IT)
  Receive Date: 20190620
  Receipt Date: 20190620
  Transmission Date: 20190711
  Serious: Yes (Other)
  Sender: FDA-Public Use
  Company Number: IT-MACLEODS PHARMACEUTICALS US LTD-MAC2019021746

PATIENT

DRUGS (2)
  1. XANAX [Suspect]
     Active Substance: ALPRAZOLAM
     Indication: ANXIETY
     Dosage: 0.5 MILLIGRAM, QD, ORODISPERSIBLE TABLET, PROLONGED RELEASE TABLETS
     Route: 048
     Dates: start: 20180417, end: 20180907
  2. ESCITALOPRAM 10MG TABLET [Suspect]
     Active Substance: ESCITALOPRAM OXALATE
     Indication: DEPRESSION
     Dosage: 10 MILLIGRAM, QD, TABLET
     Route: 048
     Dates: start: 20180417, end: 20180907

REACTIONS (3)
  - Depression [Recovered/Resolved]
  - Anxiety [Recovered/Resolved]
  - Therapeutic product ineffective [Recovered/Resolved]

NARRATIVE: CASE EVENT DATE: 20180907
